FAERS Safety Report 9191627 (Version 1)
Quarter: 2013Q1

REPORT INFORMATION
  Report Type: Spontaneous
  Country: BR (occurrence: BR)
  Receive Date: 20130326
  Receipt Date: 20130326
  Transmission Date: 20140127
  Serious: Yes (Other)
  Sender: FDA-Public Use
  Company Number: BR-SPECTRUM PHARMACEUTICALS, INC.-13-F-BR-00085

PATIENT
  Sex: 0

DRUGS (1)
  1. FLUOROURACIL [Suspect]
     Indication: GASTROINTESTINAL CANCER METASTATIC

REACTIONS (3)
  - Febrile neutropenia [Unknown]
  - Diarrhoea [Unknown]
  - Stomatitis [Unknown]
